FAERS Safety Report 5064755-8 (Version None)
Quarter: 2006Q3

REPORT INFORMATION
  Report Type: 
  Country: None (occurrence: None)
  Receive Date: 20060725
  Receipt Date: 20060718
  Transmission Date: 20061208
  Serious: Yes (Other)
  Sender: FDA-Public Use
  Company Number: USA-2006-0024532

PATIENT
  Age: 46 Year
  Sex: Male
  Weight: 88.4 kg

DRUGS (9)
  1. OXYCODONE HCL [Suspect]
     Indication: PAIN MANAGEMENT
     Dosage: 10 MG, TID
     Dates: start: 20000101
  2. DURAGESIC-100 [Concomitant]
  3. NEURONTIN [Concomitant]
  4. PAXIL [Concomitant]
  5. REMERON [Concomitant]
  6. PRILOSEC [Concomitant]
  7. LIPITOR [Concomitant]
  8. PLAVIX [Concomitant]
  9. NORVASC [Concomitant]

REACTIONS (3)
  - CONVULSION [None]
  - DRUG INEFFECTIVE [None]
  - LOSS OF CONSCIOUSNESS [None]
